FAERS Safety Report 5944815-7 (Version None)
Quarter: 2008Q4

REPORT INFORMATION
  Report Type: 
  Country: None (occurrence: None)
  Receive Date: 20081107
  Receipt Date: 20081104
  Transmission Date: 20090506
  Serious: Yes (Life-Threatening)
  Sender: FDA-Public Use
  Company Number: JP-ASTRAZENECA-2008AP08037

PATIENT
  Age: 84 Year
  Sex: Male
  Weight: 51 kg

DRUGS (11)
  1. OMEPRAL INJECTION [Suspect]
     Indication: ILEUS
     Route: 042
     Dates: start: 20080920, end: 20080924
  2. OMEPRAL TABLETS [Suspect]
     Indication: ILEUS
     Route: 048
     Dates: start: 20080924, end: 20081006
  3. PRIMPERAN [Concomitant]
     Indication: ILEUS
     Route: 042
     Dates: start: 20080919, end: 20080926
  4. PRIMPERAN [Concomitant]
     Indication: VOMITING
     Route: 042
     Dates: start: 20080919, end: 20080926
  5. PRIMPERAN [Concomitant]
     Route: 048
     Dates: start: 20080926, end: 20081001
  6. PRIMPERAN [Concomitant]
     Route: 048
     Dates: start: 20080926, end: 20081001
  7. MEROPEN [Concomitant]
     Indication: ILEUS
     Route: 041
     Dates: start: 20080919, end: 20080929
  8. PREDONINE [Concomitant]
     Route: 042
     Dates: start: 20080920, end: 20080922
  9. PREDONINE [Concomitant]
     Route: 042
     Dates: start: 20080923, end: 20080926
  10. ZITHROMAX [Concomitant]
     Indication: PNEUMONIA
     Route: 048
     Dates: start: 20080930, end: 20081002
  11. BIOFERMIN R [Concomitant]
     Indication: DIARRHOEA
     Route: 048
     Dates: start: 20081002, end: 20081003

REACTIONS (2)
  - INTERSTITIAL LUNG DISEASE [None]
  - TUBULOINTERSTITIAL NEPHRITIS [None]
